FAERS Safety Report 15868747 (Version 1)
Quarter: 2019Q1

REPORT INFORMATION
  Report Type: Spontaneous
  Country: US (occurrence: US)
  Receive Date: 20190125
  Receipt Date: 20190125
  Transmission Date: 20190417
  Serious: Yes (Other)
  Sender: FDA-Public Use
  Company Number: US-ASTRAZENECA-2018SF33313

PATIENT
  Age: 25920 Day
  Sex: Female
  Weight: 57.2 kg

DRUGS (39)
  1. MEDROL [Concomitant]
     Active Substance: METHYLPREDNISOLONE
  2. PRAMIPEXOLE DIHYDROCHLORIDE. [Concomitant]
     Active Substance: PRAMIPEXOLE DIHYDROCHLORIDE
  3. ESCITALOPRAM OXALATE. [Concomitant]
     Active Substance: ESCITALOPRAM OXALATE
  4. NITROFURANTOIN. [Concomitant]
     Active Substance: NITROFURANTOIN
  5. PRILOSEC OTC [Suspect]
     Active Substance: OMEPRAZOLE MAGNESIUM
     Route: 048
     Dates: start: 2005, end: 2016
  6. PRILOSEC OTC [Suspect]
     Active Substance: OMEPRAZOLE MAGNESIUM
     Route: 048
     Dates: start: 20050308
  7. MIRTAZAPINE. [Concomitant]
     Active Substance: MIRTAZAPINE
  8. IMDUR [Concomitant]
     Active Substance: ISOSORBIDE MONONITRATE
  9. CLINDAMYCIN HYDROCHLORIDE. [Concomitant]
     Active Substance: CLINDAMYCIN HYDROCHLORIDE
  10. DIAZEPAM. [Concomitant]
     Active Substance: DIAZEPAM
  11. PROMETHAZINE [Concomitant]
     Active Substance: PROMETHAZINE\PROMETHAZINE HYDROCHLORIDE
  12. OMEPRAZOLE. [Concomitant]
     Active Substance: OMEPRAZOLE
     Route: 048
     Dates: start: 20051206
  13. VYTORIN [Concomitant]
     Active Substance: EZETIMIBE\SIMVASTATIN
  14. PLAVIX [Concomitant]
     Active Substance: CLOPIDOGREL BISULFATE
     Dates: start: 20071023
  15. LUNESTA [Concomitant]
     Active Substance: ESZOPICLONE
     Dates: start: 20090506
  16. NAMENDA [Concomitant]
     Active Substance: MEMANTINE HYDROCHLORIDE
     Dates: start: 20100702
  17. LEVOFLOXACIN. [Concomitant]
     Active Substance: LEVOFLOXACIN
     Dates: start: 20100702
  18. AMITRIPTYLINE [Concomitant]
     Active Substance: AMITRIPTYLINE
  19. ZANTAC [Concomitant]
     Active Substance: RANITIDINE HYDROCHLORIDE
  20. CLOPIDOGREL [Concomitant]
     Active Substance: CLOPIDOGREL BISULFATE
  21. CILOSTAZOL. [Concomitant]
     Active Substance: CILOSTAZOL
  22. INDOMETHACIN. [Concomitant]
     Active Substance: INDOMETHACIN
  23. SIMVASTATIN. [Concomitant]
     Active Substance: SIMVASTATIN
  24. METFORMIN [Concomitant]
     Active Substance: METFORMIN HYDROCHLORIDE
  25. CARVEDILOL. [Concomitant]
     Active Substance: CARVEDILOL
     Dates: start: 20071023
  26. SUCRALFATE. [Concomitant]
     Active Substance: SUCRALFATE
     Dates: start: 20100702
  27. ASPIRIN. [Concomitant]
     Active Substance: ASPIRIN
  28. METOPROLOL SUCCINATE. [Concomitant]
     Active Substance: METOPROLOL SUCCINATE
  29. LISINOPRIL. [Concomitant]
     Active Substance: LISINOPRIL
  30. OMEPRAZOLE. [Concomitant]
     Active Substance: OMEPRAZOLE
     Route: 048
     Dates: start: 20160829
  31. ZOLPIDEM [Concomitant]
     Active Substance: ZOLPIDEM\ZOLPIDEM TARTRATE
  32. FUROSEMIDE. [Concomitant]
     Active Substance: FUROSEMIDE
     Dates: start: 20080606
  33. CEPHALEXIN. [Concomitant]
     Active Substance: CEPHALEXIN
  34. BENZONATATE. [Concomitant]
     Active Substance: BENZONATATE
  35. CIPROFLOXACIN. [Concomitant]
     Active Substance: CIPROFLOXACIN
     Dates: start: 20090429
  36. ALLOPURINOL. [Concomitant]
     Active Substance: ALLOPURINOL
  37. CALCITRIOL. [Concomitant]
     Active Substance: CALCITRIOL
  38. OMEPRAZOLE. [Concomitant]
     Active Substance: OMEPRAZOLE
     Route: 048
     Dates: start: 20140516
  39. CEFUROXIME. [Concomitant]
     Active Substance: CEFUROXIME

REACTIONS (6)
  - Type 2 diabetes mellitus [Unknown]
  - Hyperparathyroidism secondary [Unknown]
  - Anaemia of chronic disease [Unknown]
  - Essential hypertension [Unknown]
  - Chronic kidney disease [Unknown]
  - Gastrooesophageal reflux disease [Unknown]

NARRATIVE: CASE EVENT DATE: 20140516
